FAERS Safety Report 24857714 (Version 2)
Quarter: 2025Q1

REPORT INFORMATION
  Report Type: Spontaneous
  Country: CN (occurrence: CN)
  Receive Date: 20250117
  Receipt Date: 20250123
  Transmission Date: 20250409
  Serious: Yes (Hospitalization, Other)
  Sender: NOVARTIS
  Company Number: CN-002147023-NVSC2025CN005567

PATIENT
  Age: 25 Year
  Sex: Male
  Weight: 68 kg

DRUGS (1)
  1. CARBAMAZEPINE [Suspect]
     Active Substance: CARBAMAZEPINE
     Indication: Epilepsy
     Dosage: 200 MG, BID
     Route: 048
     Dates: start: 20241207, end: 20241220

REACTIONS (15)
  - Erythema multiforme [Recovered/Resolved]
  - Drug eruption [Recovered/Resolved]
  - Rash [Recovering/Resolving]
  - Pruritus [Recovered/Resolved]
  - Pyrexia [Recovered/Resolved]
  - Flushing [Recovered/Resolved]
  - Papule [Recovered/Resolved]
  - Lip ulceration [Recovered/Resolved]
  - Blister [Recovered/Resolved]
  - Blister rupture [Recovered/Resolved]
  - Penile erosion [Recovered/Resolved]
  - Penile exfoliation [Recovered/Resolved]
  - Skin exfoliation [Unknown]
  - Pigmentation disorder [Unknown]
  - HLA-B*1502 assay positive [Unknown]

NARRATIVE: CASE EVENT DATE: 20241219
